FAERS Safety Report 16048800 (Version 7)
Quarter: 2019Q2

REPORT INFORMATION
  Report Type: Spontaneous
  Country: FR (occurrence: FR)
  Receive Date: 20190307
  Receipt Date: 20190531
  Transmission Date: 20190711
  Serious: Yes (Hospitalization, Other)
  Sender: FDA-Public Use
  Company Number: FR-PFIZER INC-2019077338

PATIENT
  Age: 75 Year
  Sex: Female
  Weight: 86 kg

DRUGS (12)
  1. BISOCE [Concomitant]
     Active Substance: BISOPROLOL
     Indication: ARRHYTHMIA
  2. IBRANCE [Suspect]
     Active Substance: PALBOCICLIB
     Indication: BREAST CANCER METASTATIC
     Dosage: 125 MG, CYCLIC (125 MG, DAILY 3 WEEKS ON/1 WEEK OFF)
     Route: 048
     Dates: start: 20181203, end: 20190117
  3. BISOCE [Concomitant]
     Active Substance: BISOPROLOL
     Indication: ARRHYTHMIA SUPRAVENTRICULAR
  4. ELIQUIS [Suspect]
     Active Substance: APIXABAN
     Indication: PULMONARY EMBOLISM
     Dosage: 10 MILLIGRAM DAILY
     Route: 048
     Dates: start: 20190126
  5. BISOCE [Concomitant]
     Active Substance: BISOPROLOL
     Indication: ARRHYTHMIA SUPRAVENTRICULAR
     Dosage: 1 DF, 1X/DAY
     Route: 048
     Dates: start: 20190117
  6. BISOCE [Concomitant]
     Active Substance: BISOPROLOL
     Indication: TACHYCARDIA
  7. FASLODEX [Concomitant]
     Active Substance: FULVESTRANT
     Indication: BREAST CANCER METASTATIC
     Dosage: 250 MG, 2X/DAY
     Route: 030
     Dates: start: 20181203
  8. FENOFIBRATE. [Concomitant]
     Active Substance: FENOFIBRATE
     Indication: DYSLIPIDAEMIA
     Dosage: 1 DF, 1X/DAY
     Route: 048
     Dates: start: 201811, end: 20190218
  9. ELIQUIS [Suspect]
     Active Substance: APIXABAN
     Dosage: 5 MILLIGRAM DAILY
     Route: 048
     Dates: end: 20190204
  10. CO-APROVEL [Concomitant]
     Active Substance: HYDROCHLOROTHIAZIDE\IRBESARTAN
     Indication: HYPERTENSION
     Dosage: 1 DF, 1X/DAY
     Route: 048
     Dates: start: 20181130, end: 20190218
  11. IBRANCE [Suspect]
     Active Substance: PALBOCICLIB
     Dosage: 125 MG CYCLIC (125 MG DAILY, 3 WEEKS ON/ 1 WEEK OFF)
     Route: 048
     Dates: start: 20190211, end: 20190214
  12. INNOHEP [Concomitant]
     Active Substance: TINZAPARIN SODIUM
     Indication: PULMONARY EMBOLISM
     Dosage: 18000 IU, 1X/DAY
     Route: 058
     Dates: start: 20190204, end: 20190218

REACTIONS (5)
  - Hepatocellular injury [Recovering/Resolving]
  - Prescribed underdose [Unknown]
  - Renal failure [Recovering/Resolving]
  - Atrial fibrillation [Unknown]
  - Pulmonary embolism [Unknown]

NARRATIVE: CASE EVENT DATE: 20190211
